FAERS Safety Report 25599793 (Version 2)
Quarter: 2025Q3

REPORT INFORMATION
  Report Type: Spontaneous
  Country: EU (occurrence: EU)
  Receive Date: 20250724
  Receipt Date: 20250808
  Transmission Date: 20251021
  Serious: Yes (Life-Threatening, Hospitalization)
  Sender: TEVA
  Company Number: EU-TEVA-VS-3353132

PATIENT
  Age: 72 Year
  Sex: Male

DRUGS (7)
  1. TACROLIMUS [Suspect]
     Active Substance: TACROLIMUS
     Indication: Myocarditis-myositis-myasthenia gravis overlap syndrome
     Route: 065
  2. HUMAN IMMUNOGLOBULIN G [Suspect]
     Active Substance: HUMAN IMMUNOGLOBULIN G
     Indication: Myocarditis-myositis-myasthenia gravis overlap syndrome
     Route: 042
  3. PYRIDOSTIGMINE [Suspect]
     Active Substance: PYRIDOSTIGMINE
     Indication: Myocarditis-myositis-myasthenia gravis overlap syndrome
     Route: 065
  4. METHYLPREDNISOLONE [Suspect]
     Active Substance: METHYLPREDNISOLONE
     Indication: Myocarditis-myositis-myasthenia gravis overlap syndrome
     Route: 065
  5. METHYLPREDNISOLONE [Suspect]
     Active Substance: METHYLPREDNISOLONE
     Indication: Myocarditis-myositis-myasthenia gravis overlap syndrome
     Dosage: DOSE TAPERED
     Route: 042
  6. PEMBROLIZUMAB [Suspect]
     Active Substance: PEMBROLIZUMAB
     Indication: Malignant melanoma
     Route: 042
  7. CYCLOSPORINE [Suspect]
     Active Substance: CYCLOSPORINE
     Indication: Myocarditis-myositis-myasthenia gravis overlap syndrome
     Route: 065

REACTIONS (7)
  - Myocarditis-myositis-myasthenia gravis overlap syndrome [Recovering/Resolving]
  - Atrial fibrillation [Recovering/Resolving]
  - Atrioventricular block complete [Recovering/Resolving]
  - Drug ineffective [Unknown]
  - Respiratory failure [Recovering/Resolving]
  - Atrial flutter [Recovering/Resolving]
  - Supraventricular tachycardia [Recovering/Resolving]
